FAERS Safety Report 12204539 (Version 2)
Quarter: 2016Q2

REPORT INFORMATION
  Report Type: Spontaneous
  Country: US (occurrence: US)
  Receive Date: 20160323
  Receipt Date: 20160530
  Transmission Date: 20160815
  Serious: No
  Sender: FDA-Public Use
  Company Number: US-PFIZER INC-2016149219

PATIENT
  Age: 53 Year
  Sex: Male
  Weight: 79.37 kg

DRUGS (3)
  1. GLUCOTROL XL [Concomitant]
     Active Substance: GLIPIZIDE
     Dosage: UNK
  2. SUTENT [Suspect]
     Active Substance: SUNITINIB MALATE
     Indication: RENAL CANCER
     Dosage: 50 MG, DAILY
     Route: 048
     Dates: start: 20150130
  3. HUMULIN R [Concomitant]
     Active Substance: INSULIN HUMAN
     Dosage: UNK

REACTIONS (2)
  - Blood glucose increased [Unknown]
  - Abscess [Unknown]
